FAERS Safety Report 5809268-8 (Version None)
Quarter: 2008Q3

REPORT INFORMATION
  Report Type: 
  Country: None (occurrence: None)
  Receive Date: 20080714
  Receipt Date: 20080708
  Transmission Date: 20090109
  Serious: Yes (Hospitalization)
  Sender: FDA-Public Use
  Company Number: US-BOEHRINGER INGELHEIM GMBH, GERMANY-2008-BP-06423BP

PATIENT
  Age: 66 Year
  Sex: Male
  Weight: 99 kg

DRUGS (8)
  1. AGGRENOX [Suspect]
     Indication: CEREBROVASCULAR ACCIDENT
     Dates: start: 20031031, end: 20080301
  2. METFORMIN [Concomitant]
     Dates: start: 20020501
  3. LANTUS [Concomitant]
     Dates: start: 20030801
  4. NOVOLOG [Concomitant]
     Dates: start: 20030801
  5. AVANDIA [Concomitant]
     Dates: start: 20010301
  6. DILANTIN [Concomitant]
     Dates: start: 20041101
  7. LIPITOR [Concomitant]
     Dates: start: 20020501
  8. LISINOPRIL [Concomitant]
     Dates: start: 20010301

REACTIONS (5)
  - CEREBRAL HAEMORRHAGE [None]
  - HEADACHE [None]
  - HYPOAESTHESIA [None]
  - MUSCULAR WEAKNESS [None]
  - SUBDURAL HAEMATOMA [None]
